FAERS Safety Report 18369671 (Version 1)
Quarter: 2020Q4

REPORT INFORMATION
  Report Type: Report from Study
  Country: None (occurrence: LB)
  Receive Date: 20201012
  Receipt Date: 20201012
  Transmission Date: 20210114
  Serious: Yes (Hospitalization)
  Sender: FDA-Public Use
  Company Number: LB-ABBVIE-20K-093-3397839-00

PATIENT
  Age: 27 Year
  Sex: Female
  Weight: 48 kg

DRUGS (5)
  1. PREDNISONE. [Concomitant]
     Active Substance: PREDNISONE
     Indication: PRODUCT USED FOR UNKNOWN INDICATION
     Dosage: TO BE TAPERED GRADUALLY
     Dates: start: 201910
  2. HUMIRA [Suspect]
     Active Substance: ADALIMUMAB
     Route: 058
     Dates: start: 20191129, end: 20200110
  3. HUMIRA [Suspect]
     Active Substance: ADALIMUMAB
     Route: 058
     Dates: start: 20200508, end: 202006
  4. HUMIRA [Suspect]
     Active Substance: ADALIMUMAB
     Route: 058
     Dates: start: 20200120, end: 2020
  5. HUMIRA [Suspect]
     Active Substance: ADALIMUMAB
     Indication: CROHN^S DISEASE
     Dosage: 80MG LOADING DOSE
     Route: 058
     Dates: start: 20191115, end: 20191115

REACTIONS (10)
  - Abdominal pain [Recovered/Resolved]
  - Pus in stool [Not Recovered/Not Resolved]
  - Intestinal ulcer [Recovered/Resolved]
  - Faecal calprotectin abnormal [Not Recovered/Not Resolved]
  - Inflammation [Recovered/Resolved]
  - Dizziness [Recovered/Resolved]
  - Fatigue [Recovered/Resolved]
  - Haematochezia [Recovered/Resolved]
  - Intentional product misuse [Unknown]
  - Iron deficiency [Recovering/Resolving]

NARRATIVE: CASE EVENT DATE: 20200110
